FAERS Safety Report 19042374 (Version 1)
Quarter: 2021Q1

REPORT INFORMATION
  Report Type: Spontaneous
  Country: US (occurrence: US)
  Receive Date: 20210322
  Receipt Date: 20210322
  Transmission Date: 20210420
  Serious: No
  Sender: FDA-Public Use
  Company Number: None

PATIENT
  Age: 67 Year
  Sex: Female

DRUGS (2)
  1. COSENTYX [Suspect]
     Active Substance: SECUKINUMAB
     Indication: PSORIASIS
     Dosage: ?          OTHER FREQUENCY:EVERY 4 WEEKS;?
     Route: 058
     Dates: start: 20180124
  2. LASIX [Concomitant]
     Active Substance: FUROSEMIDE
     Dates: start: 20210321

REACTIONS (3)
  - Pollakiuria [None]
  - Renal failure [None]
  - Dyspnoea [None]

NARRATIVE: CASE EVENT DATE: 20210319
